FAERS Safety Report 19753626 (Version 3)
Quarter: 2021Q4

REPORT INFORMATION
  Report Type: Report from Study
  Country: CA (occurrence: CA)
  Receive Date: 20210826
  Receipt Date: 20211103
  Transmission Date: 20220303
  Serious: Yes (Hospitalization)
  Sender: FDA-Public Use
  Company Number: CA-JNJFOC-20210836066

PATIENT
  Sex: Male

DRUGS (1)
  1. IBRUTINIB [Suspect]
     Active Substance: IBRUTINIB
     Indication: Waldenstrom^s macroglobulinaemia
     Route: 048
     Dates: end: 20211026

REACTIONS (4)
  - Heart rate irregular [Unknown]
  - Pleural effusion [Unknown]
  - Sputum discoloured [Recovered/Resolved]
  - Fatigue [Not Recovered/Not Resolved]
